FAERS Safety Report 5508086-8 (Version None)
Quarter: 2007Q4

REPORT INFORMATION
  Report Type: 
  Country: None (occurrence: None)
  Receive Date: 20071106
  Receipt Date: 20071024
  Transmission Date: 20080405
  Serious: Yes (Other)
  Sender: FDA-Public Use
  Company Number: US-SHR-US-2007-040353

PATIENT

DRUGS (2)
  1. BETASERON [Suspect]
     Route: 058
  2. CORTICOSTEROIDS [Concomitant]

REACTIONS (1)
  - OSTEONECROSIS [None]
